FAERS Safety Report 7463554-7 (Version None)
Quarter: 2011Q2

REPORT INFORMATION
  Report Type: 
  Country: None (occurrence: None)
  Receive Date: 20110506
  Receipt Date: 20110429
  Transmission Date: 20111010
  Serious: Yes (Hospitalization)
  Sender: FDA-Public Use
  Company Number: US-WATSON-2011-05906

PATIENT
  Sex: Male
  Weight: 80.272 kg

DRUGS (1)
  1. CIPROFLOXACIN HCL [Suspect]
     Indication: URINARY TRACT INFECTION
     Dosage: 500 MG, BID
     Route: 048
     Dates: start: 20110413, end: 20110414

REACTIONS (5)
  - ARTHRITIS REACTIVE [None]
  - TENDON PAIN [None]
  - JOINT SWELLING [None]
  - JOINT EFFUSION [None]
  - ARTHRALGIA [None]
